FAERS Safety Report 11850364 (Version 2)
Quarter: 2016Q1

REPORT INFORMATION
  Report Type: Spontaneous
  Country: US (occurrence: US)
  Receive Date: 20151218
  Receipt Date: 20160203
  Transmission Date: 20160526
  Serious: No
  Sender: FDA-Public Use
  Company Number: US-JNJFOC-20151124057

PATIENT
  Age: 85 Year
  Sex: Female
  Weight: 68.49 kg

DRUGS (1)
  1. TYLENOL EXTRA STRENGTH [Suspect]
     Active Substance: ACETAMINOPHEN
     Indication: MIGRAINE
     Dosage: 3 HOURS AGO
     Route: 048

REACTIONS (4)
  - Incorrect dose administered [Unknown]
  - Expired product administered [Unknown]
  - Product use issue [Unknown]
  - Off label use [Unknown]
